FAERS Safety Report 7660407-6 (Version None)
Quarter: 2011Q3

REPORT INFORMATION
  Report Type: 
  Country: None (occurrence: None)
  Receive Date: 20110805
  Receipt Date: 20110727
  Transmission Date: 20111222
  Serious: Yes (Other)
  Sender: FDA-Public Use
  Company Number: US-ASTRAZENECA-2011SE20340

PATIENT
  Age: 430 Month
  Sex: Female
  Weight: 99.8 kg

DRUGS (4)
  1. HUMIRA [Suspect]
     Dosage: 40MG/0.8 ML PEN(40 MG, 1 IN 2 WK)
  2. LEVOTHYROXINE SODIUM [Concomitant]
  3. ENTOCORT EC [Suspect]
     Route: 048
  4. HUMIRA [Suspect]
     Indication: CROHN'S DISEASE
     Dosage: 40MG/0.8 ML PEN(40 MG, 1 IN 2 WK)
     Dates: start: 20110112

REACTIONS (4)
  - NECK PAIN [None]
  - VISION BLURRED [None]
  - INTRACRANIAL PRESSURE INCREASED [None]
  - PAPILLOEDEMA [None]
